FAERS Safety Report 6744571-9 (Version None)
Quarter: 2010Q2

REPORT INFORMATION
  Report Type: 
  Country: None (occurrence: None)
  Receive Date: 20100527
  Receipt Date: 20100517
  Transmission Date: 20101027
  Serious: Yes (Hospitalization)
  Sender: FDA-Public Use
  Company Number: PHHY2010FR32790

PATIENT
  Age: 76 Year
  Sex: Female

DRUGS (10)
  1. VOLTAREN [Suspect]
     Dosage: 250 MG, QD
     Route: 048
     Dates: end: 20100114
  2. FRAXODI [Interacting]
     Indication: PAIN IN EXTREMITY
     Dosage: UNK
     Route: 058
     Dates: start: 20100104, end: 20100114
  3. ASPEGIC 1000 [Interacting]
     Dosage: 250 MG ONCE PER DAY
     Route: 048
     Dates: end: 20100114
  4. ASPEGIC 1000 [Interacting]
     Dosage: 250 MG, UNK
  5. AMLOR [Concomitant]
     Dosage: 5 MG, UNK
  6. LANTUS [Concomitant]
     Dosage: UNK
  7. NOVONORM [Concomitant]
     Dosage: UNK
  8. TAHOR [Concomitant]
     Dosage: 80 MG, UNK
  9. COAPROVEL [Concomitant]
     Dosage: 150/12.5 MG
  10. STAGID [Concomitant]
     Dosage: UNK

REACTIONS (7)
  - ANAEMIA [None]
  - ANGINA UNSTABLE [None]
  - ELECTROCARDIOGRAM ST SEGMENT ELEVATION [None]
  - GASTRIC ULCER [None]
  - HYPOKINESIA [None]
  - LEFT VENTRICULAR HYPERTROPHY [None]
  - STRESS CARDIOMYOPATHY [None]
